FAERS Safety Report 6269904-1 (Version None)
Quarter: 2009Q3

REPORT INFORMATION
  Report Type: 
  Country: None (occurrence: None)
  Receive Date: 20090714
  Receipt Date: 20090629
  Transmission Date: 20100115
  Serious: Yes (Other)
  Sender: FDA-Public Use
  Company Number: DSU-2009-01399

PATIENT
  Age: 56 Year
  Sex: Female
  Weight: 82.55 kg

DRUGS (5)
  1. CHOLESTAGEL (COLESEVELAM HYDROCHLORIDE) (625 MG TABLET) [Suspect]
     Indication: BLOOD CHOLESTEROL INCREASED
     Dosage: 3750 MG (3750 MG, QD), PER ORAL
     Route: 048
     Dates: start: 20090501, end: 20090531
  2. CO-AMILOFRUSE             (FUROSEMIDE, AMILORIDE HYDROCHLORIDE) [Concomitant]
  3. DICLOFENAC SODIUM [Concomitant]
  4. EZETIMIBE [Concomitant]
  5. ACETAMINOPHEN [Concomitant]

REACTIONS (5)
  - MYALGIA [None]
  - PAIN [None]
  - PAIN OF SKIN [None]
  - RASH MACULAR [None]
  - URTICARIA [None]
